FAERS Safety Report 9260266 (Version 2)
Quarter: 2013Q2

REPORT INFORMATION
  Report Type: Spontaneous
  Country: FR (occurrence: FR)
  Receive Date: 20130429
  Receipt Date: 20130617
  Transmission Date: 20140414
  Serious: Yes (Hospitalization, Other)
  Sender: FDA-Public Use
  Company Number: FR-JNJFOC-20130413246

PATIENT
  Age: 91 Year
  Sex: Female

DRUGS (16)
  1. XARELTO [Suspect]
     Indication: ATRIAL FIBRILLATION
     Route: 048
     Dates: start: 20121024, end: 20130403
  2. XARELTO [Suspect]
     Indication: CEREBROVASCULAR ACCIDENT PROPHYLAXIS
     Route: 048
     Dates: start: 20121024, end: 20130403
  3. DIGOXINE NATIVELLE [Concomitant]
     Route: 048
     Dates: start: 20130318, end: 20130321
  4. COVERSYL [Concomitant]
     Dosage: 1 TABLET MORNING
     Route: 065
  5. SOTALOL [Concomitant]
     Route: 065
  6. AERIUS [Concomitant]
     Route: 065
  7. STILNOX [Concomitant]
     Dosage: 1 TABLET AT BED-TIME
     Route: 065
  8. FUROSEMIDE [Concomitant]
     Route: 065
  9. TRAMADOL/APAP [Concomitant]
     Route: 065
  10. FERROUS ASCORBATE [Concomitant]
     Route: 065
  11. IMODIUM [Concomitant]
     Route: 065
  12. XOLAAM [Concomitant]
     Route: 065
  13. DIGOXIN [Concomitant]
     Route: 065
     Dates: start: 20130318
  14. PARIET [Concomitant]
     Route: 065
  15. TRAMADOL HYDROCHLORIDE [Concomitant]
     Route: 065
  16. LASILIX [Concomitant]
     Route: 065

REACTIONS (2)
  - Pulmonary embolism [Unknown]
  - Drug ineffective [Unknown]
